FAERS Safety Report 4515482-4 (Version None)
Quarter: 2004Q4

REPORT INFORMATION
  Report Type: 
  Country: None (occurrence: None)
  Receive Date: 20041126
  Receipt Date: 20041117
  Transmission Date: 20050328
  Serious: Yes (Other)
  Sender: FDA-Public Use
  Company Number: 2004095012

PATIENT
  Age: 68 Year
  Sex: Female

DRUGS (4)
  1. NORVASC [Suspect]
     Dosage: 2.5 MG (2.5 MG 1 IN 1 D)
  2. CALCIUM CARBONATE (CALCIUM CARBONATE) [Concomitant]
  3. RALOXIFENE HCL [Concomitant]
  4. ALL OTHER THERAPEUTIC PRODUCTS (ALL OTHER THERAPEUTIC PRODUCTS) [Concomitant]

REACTIONS (4)
  - FEELING ABNORMAL [None]
  - OEDEMA [None]
  - RASH [None]
  - WRIST FRACTURE [None]
